FAERS Safety Report 8436154-X (Version None)
Quarter: 2012Q2

REPORT INFORMATION
  Report Type: 
  Country: None (occurrence: None)
  Receive Date: 20120614
  Receipt Date: 20120611
  Transmission Date: 20120825
  Serious: Yes (Hospitalization, Other)
  Sender: FDA-Public Use
  Company Number: US-PFIZER INC-2012140425

PATIENT
  Sex: Male
  Weight: 70 kg

DRUGS (2)
  1. LEVOXYL [Suspect]
     Indication: HYPOTHYROIDISM
     Dosage: 100 UG, 1X/DAY
     Route: 048
     Dates: end: 20120607
  2. LEVOTHYROXINE SODIUM [Suspect]
     Indication: HYPOTHYROIDISM
     Dosage: UNK
     Dates: start: 20120608

REACTIONS (4)
  - THYROID FUNCTION TEST ABNORMAL [None]
  - FALL [None]
  - ABNORMAL BEHAVIOUR [None]
  - FEELING ABNORMAL [None]
